FAERS Safety Report 4634960-0 (Version None)
Quarter: 2005Q2

REPORT INFORMATION
  Report Type: 
  Country: None (occurrence: None)
  Receive Date: 20050411
  Receipt Date: 20050330
  Transmission Date: 20051028
  Serious: Yes (Other)
  Sender: FDA-Public Use
  Company Number: 2005051644

PATIENT
  Age: 63 Year
  Sex: Female

DRUGS (14)
  1. ZYVOX [Suspect]
     Indication: CNS VENTRICULITIS
     Dosage: 1200 MG (600 MG, 1 IN 12HR), INTRAVENOUS
     Route: 042
     Dates: start: 20050319
  2. PROPOFOL [Suspect]
     Indication: SEDATION
     Dosage: INTRAVENOUS
     Route: 042
  3. ALBUMIN (HUMAN) [Concomitant]
  4. POTASSIUM ACETATE [Concomitant]
  5. DOPAMINE (DOPAMINE) [Concomitant]
  6. DOBUTAMINE (DOBUTAMINE) [Concomitant]
  7. NIMODIPINE (NIMODIPINE) [Concomitant]
  8. ERYTHROPOIETIN (ERYTHROPOIETIN) [Concomitant]
  9. FAMOTIDINE [Concomitant]
  10. TPN [Concomitant]
  11. IRON (IRON) [Concomitant]
  12. HEPARIN [Concomitant]
  13. PIP /TAZO(PIPERACILLIN SODIUM, TAZOBACTAM SODIUM) [Concomitant]
  14. INSULIN [Concomitant]

REACTIONS (1)
  - PARALYSIS FLACCID [None]
